FAERS Safety Report 5929482-0 (Version None)
Quarter: 2008Q3

REPORT INFORMATION
  Report Type: 
  Country: None (occurrence: None)
  Receive Date: 20080924
  Receipt Date: 20080812
  Transmission Date: 20090109
  Serious: Yes (Other)
  Sender: FDA-Public Use
  Company Number: A03200801482

PATIENT
  Age: 80 Year
  Sex: Female
  Weight: 113.3993 kg

DRUGS (4)
  1. AMBIEN CR [Suspect]
     Indication: INSOMNIA
     Dosage: 6.25 MG HS - ORAL
     Route: 048
     Dates: end: 20080306
  2. AMBIEN CR [Suspect]
     Indication: INSOMNIA
     Dosage: 6.25 MG HS - ORAL
     Route: 048
  3. OXYMORPHONE HCL [Suspect]
  4. DIABETES MEDICATION NOS [Concomitant]

REACTIONS (2)
  - HALLUCINATION [None]
  - WITHDRAWAL SYNDROME [None]
